FAERS Safety Report 25527626 (Version 1)
Quarter: 2025Q3

REPORT INFORMATION
  Report Type: Spontaneous
  Country: CN (occurrence: CN)
  Receive Date: 20250708
  Receipt Date: 20250708
  Transmission Date: 20251020
  Serious: Yes (Other)
  Sender: ENDO
  Company Number: CN-ENDO USA, INC.-2025-001492

PATIENT
  Age: 16 Year
  Sex: Male

DRUGS (3)
  1. ETOMIDATE [Suspect]
     Active Substance: ETOMIDATE
     Indication: Substance use
     Dates: start: 2024, end: 2024
  2. DIPHENHYDRAMINE [Concomitant]
     Active Substance: DIPHENHYDRAMINE
     Indication: Product used for unknown indication
     Route: 065
  3. PROPOXATE [Concomitant]
     Indication: Product used for unknown indication
     Route: 065

REACTIONS (5)
  - Adrenal insufficiency [Unknown]
  - Drug abuse [Recovered/Resolved]
  - Confusional state [Unknown]
  - Insomnia [Unknown]
  - Gait disturbance [Unknown]

NARRATIVE: CASE EVENT DATE: 20240101
